FAERS Safety Report 9183098 (Version 1)
Quarter: 2013Q1

REPORT INFORMATION
  Report Type: Spontaneous
  Country: US (occurrence: US)
  Receive Date: 20130322
  Receipt Date: 20130322
  Transmission Date: 20140127
  Serious: No
  Sender: FDA-Public Use
  Company Number: US-BRISTOL-MYERS SQUIBB COMPANY-16381220

PATIENT
  Age: 76 Year
  Sex: Male

DRUGS (2)
  1. ERBITUX [Suspect]
     Indication: SMALL INTESTINE CARCINOMA
     Dosage: LAST TREATMENT:30JAN12.
     Dates: start: 201112
  2. 5-FLUOROURACIL [Concomitant]
     Indication: CHEMOTHERAPY

REACTIONS (1)
  - Rash [Unknown]
